FAERS Safety Report 14992451 (Version 2)
Quarter: 2018Q2

REPORT INFORMATION
  Report Type: Spontaneous
  Country: ES (occurrence: ES)
  Receive Date: 20180609
  Receipt Date: 20180616
  Transmission Date: 20180711
  Serious: Yes (Hospitalization, Other)
  Sender: FDA-Public Use
  Company Number: ES-ZYDUS-020339

PATIENT
  Age: 74 Year
  Sex: Female

DRUGS (11)
  1. FLUOXETINE [Interacting]
     Active Substance: FLUOXETINE HYDROCHLORIDE
     Indication: DEPRESSION
     Dosage: 1-0-0
     Route: 065
  2. QUETIAPINE/QUETIAPINE FUMARATE [Suspect]
     Active Substance: QUETIAPINE FUMARATE
     Indication: PRODUCT USED FOR UNKNOWN INDICATION
     Dosage: 0-0-1
     Route: 065
  3. HYDROCHLOROTHIAZIDE/LOSARTAN POTASSIUM [Concomitant]
     Indication: PRODUCT USED FOR UNKNOWN INDICATION
     Dosage: 100/25 MG, 1-0-0
     Route: 065
  4. PRAVASTATIN. [Concomitant]
     Active Substance: PRAVASTATIN
     Indication: PRODUCT USED FOR UNKNOWN INDICATION
     Dosage: 0-0-1
     Route: 065
  5. AMIODARONE [Concomitant]
     Active Substance: AMIODARONE
     Indication: PRODUCT USED FOR UNKNOWN INDICATION
     Dosage: 0-1-0
     Route: 065
  6. RISPERIDONE. [Interacting]
     Active Substance: RISPERIDONE
     Indication: PRODUCT USED FOR UNKNOWN INDICATION
     Dosage: 01 MG/ML
     Route: 065
     Dates: start: 201708
  7. AMLODIPINE [Concomitant]
     Active Substance: AMLODIPINE BESYLATE
     Indication: PRODUCT USED FOR UNKNOWN INDICATION
     Dosage: 1-0-0
     Route: 065
  8. BISOPROLOL [Concomitant]
     Active Substance: BISOPROLOL
     Indication: PRODUCT USED FOR UNKNOWN INDICATION
     Route: 065
  9. PARACETAMOL [Concomitant]
     Active Substance: ACETAMINOPHEN
     Indication: PRODUCT USED FOR UNKNOWN INDICATION
     Dosage: 1-1-1
     Route: 065
  10. LEVETIRACETAM. [Suspect]
     Active Substance: LEVETIRACETAM
     Indication: PRODUCT USED FOR UNKNOWN INDICATION
     Dosage: 1-0-1
     Route: 065
     Dates: start: 201706, end: 201708
  11. FLUPENTIXOL/MELITRACEN [Interacting]
     Active Substance: FLUPENTIXOL\MELITRACEN
     Indication: PRODUCT USED FOR UNKNOWN INDICATION
     Dosage: 10/0.5 MG,1-0-0
     Route: 065

REACTIONS (9)
  - Suicidal ideation [Unknown]
  - Serotonin syndrome [Unknown]
  - Weight increased [Unknown]
  - Oliguria [Unknown]
  - Tinnitus [Unknown]
  - Drug interaction [Unknown]
  - Oedema [Unknown]
  - Hyperthermia [Unknown]
  - Hyperhidrosis [Unknown]
